FAERS Safety Report 8987908 (Version 3)
Quarter: 2013Q1

REPORT INFORMATION
  Report Type: Spontaneous
  Country: FR (occurrence: FR)
  Receive Date: 20121227
  Receipt Date: 20130118
  Transmission Date: 20140127
  Serious: Yes (Other)
  Sender: FDA-Public Use
  Company Number: FR-VIIV HEALTHCARE LIMITED-B0854781A

PATIENT
  Sex: Female

DRUGS (2)
  1. CELSENTRI [Suspect]
     Indication: HIV INFECTION
     Route: 065
  2. CORTICOID [Suspect]
     Indication: PRODUCT USED FOR UNKNOWN INDICATION
     Route: 065

REACTIONS (1)
  - Neuromyopathy [Unknown]
